FAERS Safety Report 9344091 (Version 1)
Quarter: 2013Q2

REPORT INFORMATION
  Report Type: Spontaneous
  Country: US (occurrence: None)
  Receive Date: 20130610
  Receipt Date: 20130610
  Transmission Date: 20140414
  Serious: Yes (Hospitalization)
  Sender: FDA-Public Use
  Company Number: UTC-033502

PATIENT
  Age: 55 Year
  Sex: Female
  Weight: 65.9 kg

DRUGS (1)
  1. REMODULIN (5 MILLIGRAM/ MILLILITERS, INJECTION FOR INFUSION) (TREPROSTINIL SODIUM) [Suspect]
     Indication: COR PULMONALE CHRONIC
     Dosage: 0.044 UG/KG, 1 IN 1 MIN
     Route: 058
     Dates: start: 20101028

REACTIONS (7)
  - Infusion site abscess [None]
  - Panic attack [None]
  - Blood urine present [None]
  - Weight decreased [None]
  - Infusion site erythema [None]
  - Multiple allergies [None]
  - Tremor [None]
